FAERS Safety Report 8901732 (Version 1)
Quarter: 2012Q4

REPORT INFORMATION
  Report Type: Spontaneous
  Country: AU (occurrence: None)
  Receive Date: 20121101
  Receipt Date: 20121101
  Transmission Date: 20130627
  Serious: Yes (Other)
  Sender: FDA-Public Use
  Company Number: 2012000231

PATIENT
  Age: 46 Year
  Sex: Female
  Weight: 127 kg

DRUGS (1)
  1. ACEON (PERINDOPRIL ERBUMINE) TABLET [Suspect]
     Indication: BENIGN ESSENTIAL HYPERTENSION
     Route: 048
     Dates: start: 20120615, end: 20120618

REACTIONS (5)
  - Dyspnoea [None]
  - Wheezing [None]
  - Throat irritation [None]
  - Insomnia [None]
  - Cough [None]
